FAERS Safety Report 5062381-8 (Version None)
Quarter: 2006Q3

REPORT INFORMATION
  Report Type: 
  Country: None (occurrence: None)
  Receive Date: 20060726
  Receipt Date: 20060721
  Transmission Date: 20061208
  Serious: Yes (Other)
  Sender: FDA-Public Use
  Company Number: FR-GLAXOSMITHKLINE-B0431807A

PATIENT
  Age: 58 Year
  Sex: Female

DRUGS (2)
  1. AVANDAMET [Suspect]
     Indication: DIABETES MELLITUS NON-INSULIN-DEPENDENT
     Route: 048
     Dates: start: 20060501
  2. ANTITUBERCULOTIC [Concomitant]
     Indication: TUBERCULOSIS
     Route: 065

REACTIONS (2)
  - ASPARTATE AMINOTRANSFERASE INCREASED [None]
  - BLOOD CREATININE INCREASED [None]
